FAERS Safety Report 11177638 (Version 9)
Quarter: 2016Q1

REPORT INFORMATION
  Report Type: Spontaneous
  Country: US (occurrence: US)
  Receive Date: 20150610
  Receipt Date: 20160225
  Transmission Date: 20160525
  Serious: Yes (Death, Other)
  Sender: FDA-Public Use
  Company Number: US-PFIZER INC-2015189757

PATIENT
  Age: 60 Year
  Sex: Male

DRUGS (5)
  1. DILTIAZEM [Concomitant]
     Active Substance: DILTIAZEM
     Indication: MYOCARDIAL INFARCTION
     Dosage: 120 MG, UNK
  2. TRAZODONE [Concomitant]
     Active Substance: TRAZODONE HYDROCHLORIDE
     Indication: SLEEP DISORDER
     Dosage: 50 MG, UNK
     Dates: start: 201402
  3. ZEMPLAR [Suspect]
     Active Substance: PARICALCITOL
     Indication: PANCREATIC CARCINOMA
     Dosage: 2 UG, UNK
     Route: 048
     Dates: start: 20150619, end: 20150708
  4. SUTENT [Suspect]
     Active Substance: SUNITINIB MALATE
     Indication: PANCREATIC CARCINOMA
     Dosage: 37.5 MG, 1X/DAY
     Route: 048
     Dates: start: 20150622, end: 20150705
  5. LIPITOR [Concomitant]
     Active Substance: ATORVASTATIN CALCIUM
     Indication: BLOOD CHOLESTEROL INCREASED
     Dosage: 40 MG, UNK

REACTIONS (7)
  - Pancreatic carcinoma [Fatal]
  - Gait disturbance [Recovering/Resolving]
  - Myalgia [Recovering/Resolving]
  - Asthenia [Recovering/Resolving]
  - Fatigue [Recovering/Resolving]
  - Decreased appetite [Unknown]
  - Disease progression [Fatal]

NARRATIVE: CASE EVENT DATE: 20150703
